FAERS Safety Report 10783932 (Version 1)
Quarter: 2015Q1

REPORT INFORMATION
  Report Type: Spontaneous
  Country: GB (occurrence: GB)
  Receive Date: 20150210
  Receipt Date: 20150210
  Transmission Date: 20150721
  Serious: Yes (Hospitalization)
  Sender: FDA-Public Use
  Company Number: GB-ROCHE-1534203

PATIENT
  Age: 75 Year
  Sex: Male
  Weight: 68.1 kg

DRUGS (12)
  1. PARACETAMOL [Concomitant]
     Active Substance: ACETAMINOPHEN
     Route: 065
  2. FLUCONAZOLE. [Concomitant]
     Active Substance: FLUCONAZOLE
     Route: 065
     Dates: start: 20150106, end: 20150109
  3. OSELTAMIVIR [Suspect]
     Active Substance: OSELTAMIVIR
     Indication: PROPHYLAXIS
     Route: 048
     Dates: start: 20150109, end: 20150121
  4. CIPROFLOXACIN. [Concomitant]
     Active Substance: CIPROFLOXACIN
  5. GENTAMICIN. [Concomitant]
     Active Substance: GENTAMICIN
     Route: 065
     Dates: start: 20150106, end: 20150109
  6. DOCUSATE [Concomitant]
     Active Substance: DOCUSATE
     Route: 065
  7. TINZAPARIN [Concomitant]
     Active Substance: TINZAPARIN
     Route: 065
  8. LINEZOLID. [Concomitant]
     Active Substance: LINEZOLID
     Route: 065
  9. MONTELUKAST [Concomitant]
     Active Substance: MONTELUKAST SODIUM
     Route: 065
  10. MORPHINE [Concomitant]
     Active Substance: MORPHINE
     Route: 065
  11. METRONIDAZOLE. [Concomitant]
     Active Substance: METRONIDAZOLE
     Route: 065
     Dates: start: 20150106, end: 20150109
  12. SENNA [Concomitant]
     Active Substance: SENNA LEAF\SENNOSIDES\SENNOSIDES A AND B
     Route: 065

REACTIONS (9)
  - Blood pressure decreased [Unknown]
  - Faeces discoloured [Unknown]
  - Haematemesis [Unknown]
  - Hiatus hernia [Unknown]
  - Heart rate increased [Unknown]
  - Upper gastrointestinal haemorrhage [Recovering/Resolving]
  - Metabolic acidosis [Unknown]
  - Haemoglobin decreased [Unknown]
  - Gastritis erosive [Unknown]

NARRATIVE: CASE EVENT DATE: 20150121
